FAERS Safety Report 21338226 (Version 1)
Quarter: 2022Q3

REPORT INFORMATION
  Report Type: Report from Study
  Country: IN (occurrence: IN)
  Receive Date: 20220915
  Receipt Date: 20220915
  Transmission Date: 20221027
  Serious: Yes (Death)
  Sender: FDA-Public Use
  Company Number: IN-JNJFOC-20220917118

PATIENT

DRUGS (3)
  1. MEBENDAZOLE [Suspect]
     Active Substance: MEBENDAZOLE
     Indication: Glioblastoma
     Route: 065
  2. LOMUSTINE [Suspect]
     Active Substance: LOMUSTINE
     Indication: Glioblastoma
     Route: 065
  3. TEMOZOLOMIDE [Suspect]
     Active Substance: TEMOZOLOMIDE
     Indication: Glioblastoma
     Route: 065

REACTIONS (2)
  - Adverse event [Fatal]
  - Off label use [Unknown]
